FAERS Safety Report 4993689-X (Version None)
Quarter: 2006Q2

REPORT INFORMATION
  Report Type: 
  Country: None (occurrence: None)
  Receive Date: 20060503
  Receipt Date: 20060503
  Transmission Date: 20061013
  Serious: Yes (Other)
  Sender: FDA-Public Use
  Company Number: None

PATIENT
  Age: 79 Year
  Sex: Female
  Weight: 73.4827 kg

DRUGS (3)
  1. CARIMUNE NF 5 GM ZLB [Suspect]
     Indication: IDIOPATHIC THROMBOCYTOPENIC PURPURA
     Dosage: 66 GM ONCE A MONTH IV DRIP
     Route: 042
     Dates: start: 20051118, end: 20060502
  2. CARIMUNE NF 12 GM ZLB [Suspect]
  3. CARIMUNE NF 6 GM ZLB [Suspect]

REACTIONS (4)
  - ABDOMINAL PAIN [None]
  - COLD SWEAT [None]
  - DIZZINESS [None]
  - NAUSEA [None]
